FAERS Safety Report 5506725-9 (Version None)
Quarter: 2007Q4

REPORT INFORMATION
  Report Type: 
  Country: None (occurrence: None)
  Receive Date: 20071101
  Receipt Date: 20071005
  Transmission Date: 20080405
  Serious: Yes (Other)
  Sender: FDA-Public Use
  Company Number: 60427

PATIENT
  Sex: Male

DRUGS (1)
  1. IBUPROFOL 200MG/ PERRIGO COMPANY [Suspect]
     Indication: OVERDOSE
     Dosage: 51 MG/KG

REACTIONS (2)
  - OVERDOSE [None]
  - PANCREATITIS ACUTE [None]
